FAERS Safety Report 25272867 (Version 2)
Quarter: 2025Q2

REPORT INFORMATION
  Report Type: Spontaneous
  Country: US (occurrence: US)
  Receive Date: 20250506
  Receipt Date: 20250513
  Transmission Date: 20250716
  Serious: No
  Sender: PFIZER
  Company Number: US-PFIZER INC-202500019624

PATIENT
  Age: 22 Year
  Sex: Male

DRUGS (1)
  1. VELSIPITY [Suspect]
     Active Substance: ETRASIMOD ARGININE
     Dosage: 2 MG, DAILY
     Route: 048
     Dates: start: 202501

REACTIONS (5)
  - Vitamin B12 decreased [Unknown]
  - Weight decreased [Unknown]
  - Vitamin D deficiency [Unknown]
  - Rectal tenesmus [Unknown]
  - Alopecia [Unknown]
